FAERS Safety Report 10055261 (Version 3)
Quarter: 2014Q2

REPORT INFORMATION
  Report Type: Spontaneous
  Country: JP (occurrence: JP)
  Receive Date: 20140403
  Receipt Date: 20140501
  Transmission Date: 20141212
  Serious: Yes (Other)
  Sender: FDA-Public Use
  Company Number: JP-009507513-1404JPN000089

PATIENT
  Age: 35 Year
  Sex: Male

DRUGS (2)
  1. HYDROCORTISONE [Suspect]
  2. HYDROCORTISONE [Suspect]
     Dosage: 300 MG ON 02-AUG-2014 AND CONTINUED WITH TAPERING DOSE UP TO ONE WEEK
     Dates: start: 20130802, end: 20130809

REACTIONS (1)
  - Psychiatric symptom [Recovered/Resolved]
